FAERS Safety Report 13956680 (Version 1)
Quarter: 2017Q3

REPORT INFORMATION
  Report Type: Report from Study
  Country: None (occurrence: GR)
  Receive Date: 20170912
  Receipt Date: 20170912
  Transmission Date: 20171128
  Serious: Yes (Death, Hospitalization)
  Sender: FDA-Public Use
  Company Number: GR-ABBVIE-17K-066-2097991-00

PATIENT
  Age: 72 Year
  Sex: Male
  Weight: 70 kg

DRUGS (1)
  1. DUODOPA [Suspect]
     Active Substance: CARBIDOPA\LEVODOPA
     Indication: PARKINSON^S DISEASE
     Dosage: MORNING DOSE: 3.8ML; CONTINUOUS RATE: 0.4ML/H; EXTRA DOSE: 1.2ML
     Route: 050
     Dates: start: 20120401

REACTIONS (2)
  - Infection [Fatal]
  - Faecaloma [Fatal]

NARRATIVE: CASE EVENT DATE: 20170801
